FAERS Safety Report 13018221 (Version 1)
Quarter: 2016Q4

REPORT INFORMATION
  Report Type: Spontaneous
  Country: US (occurrence: US)
  Receive Date: 20161212
  Receipt Date: 20161212
  Transmission Date: 20170207
  Serious: No
  Sender: FDA-Public Use
  Company Number: US-MISSION PHARMACAL COMPANY-1060687

PATIENT
  Age: 55 Year
  Sex: Female

DRUGS (3)
  1. POTASSIUM CITRATE. [Suspect]
     Active Substance: POTASSIUM CITRATE
     Indication: NEPHROLITHIASIS
     Route: 065
  2. FLOMAX [Concomitant]
     Active Substance: TAMSULOSIN HYDROCHLORIDE
     Route: 065
  3. THIOLA [Concomitant]
     Active Substance: TIOPRONIN
     Route: 065
     Dates: start: 20141016

REACTIONS (2)
  - Bladder pain [Unknown]
  - Back pain [Unknown]
